FAERS Safety Report 15536268 (Version 1)
Quarter: 2018Q4

REPORT INFORMATION
  Report Type: Spontaneous
  Country: US (occurrence: US)
  Receive Date: 20181022
  Receipt Date: 20181022
  Transmission Date: 20190205
  Serious: No
  Sender: FDA-Public Use
  Company Number: US-VERTEX PHARMACEUTICALS-2018-007569

PATIENT
  Age: 13 Year
  Sex: Male

DRUGS (4)
  1. SYMDEKO [Suspect]
     Active Substance: IVACAFTOR\TEZACAFTOR
     Indication: CYSTIC FIBROSIS
     Dosage: 100MG TEZACAFTOR/150MG IVACAFTOR AM; 150MG IVACAFTOR PM
     Route: 048
     Dates: start: 20180730
  2. LINEZOLID. [Concomitant]
     Active Substance: LINEZOLID
  3. ONDANSETRON [Concomitant]
     Active Substance: ONDANSETRON
  4. TOBI [Concomitant]
     Active Substance: TOBRAMYCIN

REACTIONS (1)
  - Complication associated with device [Unknown]

NARRATIVE: CASE EVENT DATE: 201809
